FAERS Safety Report 5842293-X (Version None)
Quarter: 2008Q3

REPORT INFORMATION
  Report Type: 
  Country: None (occurrence: None)
  Receive Date: 20080731
  Receipt Date: 20080625
  Transmission Date: 20090109
  Serious: No
  Sender: FDA-Public Use
  Company Number: US200806005973

PATIENT
  Age: 74 Year
  Sex: Female
  Weight: 79.4 kg

DRUGS (6)
  1. BYETTA [Suspect]
     Indication: TYPE 2 DIABETES MELLITUS
     Dosage: 5 UG, 2/D, SUBCUTANEOUS
     Route: 058
     Dates: start: 20080301
  2. LANTUS [Concomitant]
  3. METFORMIN HCL [Concomitant]
  4. LEVOTHYROXINE SODIUM [Concomitant]
  5. AVAPRO [Concomitant]
  6. ASPIRIN [Concomitant]

REACTIONS (5)
  - ASTHENIA [None]
  - GAIT DISTURBANCE [None]
  - MYALGIA [None]
  - SENSATION OF HEAVINESS [None]
  - WEIGHT DECREASED [None]
